FAERS Safety Report 22054003 (Version 1)
Quarter: 2023Q1

REPORT INFORMATION
  Report Type: Spontaneous
  Country: US (occurrence: US)
  Receive Date: 20230302
  Receipt Date: 20230302
  Transmission Date: 20230418
  Serious: Yes (Other)
  Sender: FDA-Public Use
  Company Number: US-FreseniusKabi-FK202302383

PATIENT
  Age: 22 Week
  Sex: Female
  Weight: 590 kg

DRUGS (1)
  1. SMOFLIPID [Suspect]
     Active Substance: FISH OIL\MEDIUM-CHAIN TRIGLYCERIDES\OLIVE OIL\SOYBEAN OIL
     Indication: Nutritional supplementation
     Dosage: INJECTABLE EMULSION?3 KG/DAY
     Route: 042
     Dates: start: 20230211, end: 20230217

REACTIONS (2)
  - Intestinal perforation [Not Recovered/Not Resolved]
  - Hyperglycaemia [Not Recovered/Not Resolved]
